FAERS Safety Report 8523489 (Version 7)
Quarter: 2014Q1

REPORT INFORMATION
  Report Type: Report from Study
  Country: JP (occurrence: JP)
  Receive Date: 20120420
  Receipt Date: 20140304
  Transmission Date: 20141002
  Serious: Yes (Other)
  Sender: FDA-Public Use
  Company Number: JP-VERTEX PHARMACEUTICAL INC.-AE-2012-005213

PATIENT
  Age: 51 Year
  Sex: Male

DRUGS (29)
  1. VX-950 (TELAPREVIR) [Suspect]
     Indication: CHRONIC HEPATITIS C
     Dosage: 2250 MG, QD
     Route: 048
     Dates: start: 20120124, end: 20120328
  2. VX-950 (TELAPREVIR) [Suspect]
     Dosage: 1500 MG, QD
     Route: 048
     Dates: start: 20120329, end: 20120405
  3. REBETOL [Suspect]
     Indication: CHRONIC HEPATITIS C
     Dosage: 1000 MG, QD
     Route: 048
     Dates: start: 20120124, end: 20120215
  4. REBETOL [Suspect]
     Dosage: 400 MG, QD
     Route: 048
     Dates: start: 20120216, end: 20120222
  5. REBETOL [Suspect]
     Dosage: 200 MG, QD
     Route: 048
     Dates: start: 20120223, end: 20120314
  6. REBETOL [Suspect]
     Dosage: 400 MG, QD
     Route: 048
     Dates: start: 20120315, end: 20120523
  7. REBETOL [Suspect]
     Dosage: 600 MG, QD
     Route: 048
     Dates: start: 20120524, end: 20120711
  8. PEGINTRON [Suspect]
     Indication: CHRONIC HEPATITIS C
     Dosage: 1.5 ?G/KG, QW
     Route: 058
     Dates: start: 20120124, end: 20120412
  9. PEGINTRON [Suspect]
     Dosage: 0.75 ?G/KG, QW
     Route: 058
     Dates: start: 20120413, end: 20120510
  10. PEGINTRON [Suspect]
     Dosage: 1.0 ?G/KG, QW
     Route: 058
     Dates: start: 20120517, end: 20120705
  11. URSO [Suspect]
     Indication: CHRONIC HEPATITIS C
     Dosage: 900 MG, QD
     Route: 048
     Dates: start: 20101005, end: 20120307
  12. OMERAP [Concomitant]
     Dosage: 20 MG, QD
     Route: 048
     Dates: end: 20120208
  13. ADETPHOS [Concomitant]
     Dosage: 40 MG, QD
     Route: 048
     Dates: end: 20120208
  14. YOUCOBAL [Concomitant]
     Dosage: 0.5 MG, QD
     Route: 048
     Dates: end: 20120208
  15. HALCION [Concomitant]
     Dosage: 0.25 MG, QD
     Route: 048
     Dates: end: 20120130
  16. ROHYPNOL [Concomitant]
     Dosage: 4 MG, QD
     Route: 048
     Dates: end: 20120214
  17. DEPAS [Concomitant]
     Dosage: 0.5 MG, QD
     Route: 048
  18. CALBLOCK [Concomitant]
     Dosage: 16 MG, QD
     Route: 048
  19. BLOPRESS [Concomitant]
     Dosage: 8 MG, QD
     Route: 048
     Dates: end: 20120216
  20. BLOPRESS [Concomitant]
     Dosage: 2 MG, QD
     Route: 048
     Dates: start: 20120217, end: 20120315
  21. POLARAMINE [Concomitant]
     Dosage: 4 MG, QD
     Route: 048
     Dates: start: 20120308
  22. NEOPHAGEN C [Concomitant]
     Dosage: 4 DF, QD
     Route: 048
     Dates: end: 20120207
  23. BIO-THREE [Concomitant]
     Dosage: 4 DF, QD
     Route: 048
     Dates: start: 20120124, end: 20120208
  24. FLOMOX [Concomitant]
     Dosage: 300 MG, QD
     Route: 048
     Dates: start: 20120404, end: 20120408
  25. PARIET [Concomitant]
     Dosage: 10 MG, QD
     Route: 048
     Dates: start: 20120209, end: 20120711
  26. LENDORMIN [Concomitant]
     Dosage: 0.25 MG, QD
     Route: 048
     Dates: start: 20120127
  27. LIVOSTIN [Concomitant]
     Dosage: UNK, PRN
     Route: 031
     Dates: start: 20120412, end: 20120523
  28. HYALEIN [Concomitant]
     Dosage: UNK, PRN
     Route: 031
     Dates: start: 20120412
  29. RESTAMIN CORTISONE [Concomitant]
     Dosage: UNK, QD/PRN
     Route: 061
     Dates: start: 20120206, end: 20120229

REACTIONS (3)
  - Skin ulcer [Recovering/Resolving]
  - Rash [Recovering/Resolving]
  - Retinal haemorrhage [Recovered/Resolved]
